FAERS Safety Report 8109328-5 (Version None)
Quarter: 2012Q1

REPORT INFORMATION
  Report Type: 
  Country: None (occurrence: None)
  Receive Date: 20120202
  Receipt Date: 20120125
  Transmission Date: 20120608
  Serious: Yes (Hospitalization, Other)
  Sender: FDA-Public Use
  Company Number: BE-MEDIMMUNE-MEDI-0014725

PATIENT
  Sex: Male
  Weight: 2.4 kg

DRUGS (1)
  1. SYNAGIS [Suspect]
     Dates: start: 20120112, end: 20120112

REACTIONS (2)
  - MEDICAL INDUCTION OF COMA [None]
  - RESPIRATORY DISORDER [None]
